FAERS Safety Report 23156596 (Version 1)
Quarter: 2023Q4

REPORT INFORMATION
  Report Type: Report from Study
  Country: AR (occurrence: AR)
  Receive Date: 20231107
  Receipt Date: 20231107
  Transmission Date: 20240110
  Serious: Yes (Other)
  Sender: FDA-Public Use
  Company Number: AR-JNJFOC-20231079219

PATIENT
  Age: 63 Year
  Sex: Female
  Weight: 55 kg

DRUGS (1)
  1. SIMPONI [Suspect]
     Active Substance: GOLIMUMAB
     Indication: Rheumatoid arthritis
     Route: 058
     Dates: start: 20221113

REACTIONS (4)
  - Pneumonia [Recovering/Resolving]
  - Rheumatoid arthritis [Unknown]
  - Amnesia [Unknown]
  - Bronchitis [Unknown]

NARRATIVE: CASE EVENT DATE: 20231008
